FAERS Safety Report 26075519 (Version 1)
Quarter: 2025Q4

REPORT INFORMATION
  Report Type: Spontaneous
  Country: US (occurrence: US)
  Receive Date: 20251121
  Receipt Date: 20251121
  Transmission Date: 20260118
  Serious: Yes (Other)
  Sender: NOVO NORDISK
  Company Number: US-NOVOPROD-1564928

PATIENT
  Sex: Female

DRUGS (1)
  1. TRESIBA [Suspect]
     Active Substance: INSULIN DEGLUDEC
     Indication: Diabetes mellitus
     Dosage: UNK
     Dates: end: 202510

REACTIONS (9)
  - Cerebrovascular accident [Unknown]
  - Muscle spasms [Unknown]
  - Gait inability [Unknown]
  - Influenza [Unknown]
  - Contusion [Recovered/Resolved]
  - Viral infection [Not Recovered/Not Resolved]
  - Inflammation [Unknown]
  - Psychomotor hyperactivity [Unknown]
  - Tooth loss [Unknown]

NARRATIVE: CASE EVENT DATE: 20250101
